FAERS Safety Report 8835396 (Version 1)
Quarter: 2012Q4

REPORT INFORMATION
  Report Type: 
  Country: US (occurrence: US)
  Receive Date: 20121011
  Receipt Date: 20121011
  Transmission Date: 20130627
  Serious: Yes (Other)
  Sender: FDA-Public Use
  Company Number: PHHO2012US014629

PATIENT
  Sex: Female
  Weight: 69.3 kg

DRUGS (1)
  1. ZOLEDRONATE [Suspect]
     Indication: BREAST CANCER
     Dosage: 4 mg, Q 4 weeks (6 months), Q3 months.
     Dates: start: 20071228, end: 20090803

REACTIONS (1)
  - Osteonecrosis of jaw [Recovered/Resolved with Sequelae]
